FAERS Safety Report 6595584-1 (Version None)
Quarter: 2010Q1

REPORT INFORMATION
  Report Type: 
  Country: None (occurrence: None)
  Receive Date: 20100222
  Receipt Date: 20100222
  Transmission Date: 20100710
  Serious: Yes (Other)
  Sender: FDA-Public Use
  Company Number: None

PATIENT
  Age: 12 Year
  Sex: Male

DRUGS (1)
  1. RISPERIDONE [Suspect]
     Dosage: 1MG. 1 QDAY PO
     Route: 048
     Dates: start: 20091201

REACTIONS (2)
  - DYSTONIA [None]
  - PRODUCT SUBSTITUTION ISSUE [None]
